FAERS Safety Report 24457940 (Version 3)
Quarter: 2024Q4

REPORT INFORMATION
  Report Type: Spontaneous
  Country: BR (occurrence: BR)
  Receive Date: 20241018
  Receipt Date: 20241204
  Transmission Date: 20250115
  Serious: Yes (Other)
  Sender: GLAXOSMITHKLINE
  Company Number: BR-GSK-BR2024AMR124975

PATIENT

DRUGS (1)
  1. FLUTICASONE FUROATE [Suspect]
     Active Substance: FLUTICASONE FUROATE
     Indication: Product used for unknown indication
     Dosage: UNK, 27.5MCG 1X120D

REACTIONS (3)
  - Surgery [Unknown]
  - Device use issue [Unknown]
  - Product complaint [Unknown]
